FAERS Safety Report 5423738-6 (Version None)
Quarter: 2007Q3

REPORT INFORMATION
  Report Type: 
  Country: None (occurrence: None)
  Receive Date: 20070823
  Receipt Date: 20070817
  Transmission Date: 20080115
  Serious: Yes (Other)
  Sender: FDA-Public Use
  Company Number: BR-JNJFOC-20070804297

PATIENT
  Age: 11 Month
  Sex: Male
  Weight: 13 kg

DRUGS (3)
  1. MAXIFEN [Suspect]
     Route: 048
  2. MAXIFEN [Suspect]
     Indication: PYREXIA
     Route: 048
  3. VELAMOX [Concomitant]
     Indication: PHARYNGITIS

REACTIONS (3)
  - EYE IRRITATION [None]
  - EYE SWELLING [None]
  - RASH [None]
